FAERS Safety Report 12466193 (Version 3)
Quarter: 2016Q4

REPORT INFORMATION
  Report Type: Spontaneous
  Country: IT (occurrence: IT)
  Receive Date: 20160603
  Receipt Date: 20161010
  Transmission Date: 20170207
  Serious: Yes (Other)
  Sender: FDA-Public Use
  Company Number: IT-TEVA-663218ACC

PATIENT
  Age: 77 Year
  Sex: Male
  Weight: 80 kg

DRUGS (1)
  1. LEVOFLOXACIN. [Suspect]
     Active Substance: LEVOFLOXACIN
     Indication: PNEUMONITIS
     Dosage: 500 MILLIGRAM DAILY;
     Route: 042
     Dates: start: 20160429, end: 20160505

REACTIONS (4)
  - Pain [Unknown]
  - Swelling [Unknown]
  - Haematoma [Unknown]
  - Tendon rupture [Unknown]

NARRATIVE: CASE EVENT DATE: 20160513
